FAERS Safety Report 21529126 (Version 1)
Quarter: 2022Q4

REPORT INFORMATION
  Report Type: Spontaneous
  Country: FR (occurrence: FR)
  Receive Date: 20221031
  Receipt Date: 20221031
  Transmission Date: 20230113
  Serious: Yes (Hospitalization)
  Sender: FDA-Public Use
  Company Number: None

PATIENT
  Age: 62 Year
  Sex: Female
  Weight: 47 kg

DRUGS (5)
  1. LEVOFLOXACIN [Suspect]
     Active Substance: LEVOFLOXACIN
     Indication: Prophylaxis
     Dosage: 1000 MG, 1 DAY (QD)
     Route: 048
     Dates: start: 20220728, end: 20220815
  2. VALPROATE SODIUM [Concomitant]
     Active Substance: VALPROATE SODIUM
     Indication: Epilepsy
     Dosage: 750 MILLIGRAM, 1 DAY (QD)
     Route: 048
  3. RIFAMPIN [Concomitant]
     Active Substance: RIFAMPIN
     Indication: Prophylaxis
     Dosage: 900 MG, 1 DAY (QD)
     Route: 048
     Dates: start: 20220728
  4. SACCHAROMYCES CEREVISIAE [Concomitant]
     Active Substance: SACCHAROMYCES CEREVISIAE
     Indication: Diarrhoea
     Dosage: 200 MG, 1 DOSAGE FORM, 1 DAY (QD)
     Route: 048
     Dates: start: 20220811, end: 20220826
  5. DIAZEPAM [Concomitant]
     Active Substance: DIAZEPAM
     Dosage: 10 MG, 1 DAY (QD)
     Route: 048

REACTIONS (1)
  - Inappropriate antidiuretic hormone secretion [Recovered/Resolved]

NARRATIVE: CASE EVENT DATE: 20220813
